FAERS Safety Report 8361327-4 (Version None)
Quarter: 2012Q2

REPORT INFORMATION
  Report Type: 
  Country: None (occurrence: None)
  Receive Date: 20120515
  Receipt Date: 20110803
  Transmission Date: 20120825
  Serious: No
  Sender: FDA-Public Use
  Company Number: US-ALEXION-A201101179

PATIENT
  Sex: Male

DRUGS (2)
  1. SOLIRIS [Suspect]
     Indication: PAROXYSMAL NOCTURNAL HAEMOGLOBINURIA
     Dosage: UNK, STANDARD DOSING
     Route: 042
     Dates: end: 20110525
  2. SOLIRIS [Suspect]
     Dosage: 900 MG Q12D
     Route: 042

REACTIONS (5)
  - HEADACHE [None]
  - DYSPHAGIA [None]
  - HYPERHIDROSIS [None]
  - PYREXIA [None]
  - CHROMATURIA [None]
